FAERS Safety Report 7187983-4 (Version None)
Quarter: 2010Q4

REPORT INFORMATION
  Report Type: 
  Country: None (occurrence: None)
  Receive Date: 20101222
  Receipt Date: 20100713
  Transmission Date: 20110411
  Serious: No
  Sender: FDA-Public Use
  Company Number: US-AMGEN-KDL424163

PATIENT

DRUGS (13)
  1. ENBREL [Suspect]
     Indication: PRODUCT USED FOR UNKNOWN INDICATION
     Dosage: 50 MG, QWK
     Route: 058
  2. SIMVASTATIN [Concomitant]
     Dosage: 10 MG, UNK
  3. PANTOPRAZOLE SODIUM [Concomitant]
     Dosage: 20 MG, UNK
  4. TRAMADOL HYDROCHLORIDE [Concomitant]
     Dosage: 50 MG, UNK
  5. DIPHENHYDRAMINE HYDROCHLORIDE [Concomitant]
     Dosage: 25 MG, UNK
  6. METFORMIN [Concomitant]
     Dosage: 500 MG, UNK
  7. ISONIAZID [Concomitant]
     Dosage: 100 MG, UNK
  8. DIAZEPAM [Concomitant]
     Dosage: 5 MG, UNK
  9. UNSPECIFIED MEDICATION [Concomitant]
     Dosage: 125 MG, UNK
  10. COLECALCIFEROL [Concomitant]
     Dosage: 1000 IU, UNK
  11. STOOL SOFTENER [Concomitant]
     Dosage: UNK UNK, UNK
  12. RAMELTEON [Concomitant]
     Dosage: 8 MG, UNK
  13. ACETAMINOPHEN [Concomitant]
     Dosage: 325 MG, UNK

REACTIONS (2)
  - ARTHRALGIA [None]
  - MYALGIA [None]
